FAERS Safety Report 12980304 (Version 1)
Quarter: 2016Q4

REPORT INFORMATION
  Report Type: Report from Study
  Country: AU (occurrence: AU)
  Receive Date: 20161128
  Receipt Date: 20161128
  Transmission Date: 20170207
  Serious: Yes (Hospitalization)
  Sender: FDA-Public Use
  Company Number: PHHY2016AU109448

PATIENT
  Sex: Male

DRUGS (2)
  1. SANDOSTATIN LAR DEPOT [Suspect]
     Active Substance: OCTREOTIDE ACETATE
     Indication: CARCINOID SYNDROME
     Dosage: 30 MG, UNK
     Route: 030
  2. CALCIUM [Concomitant]
     Active Substance: CALCIUM
     Indication: RENAL DISORDER
     Route: 065

REACTIONS (4)
  - Abdominal pain [Recovering/Resolving]
  - Colitis [Recovering/Resolving]
  - Arthralgia [Recovering/Resolving]
  - Vomiting [Recovering/Resolving]
